FAERS Safety Report 8577759-5 (Version None)
Quarter: 2012Q3

REPORT INFORMATION
  Report Type: 
  Country: None (occurrence: None)
  Receive Date: 20120808
  Receipt Date: 20120731
  Transmission Date: 20120928
  Serious: Yes (Hospitalization)
  Sender: FDA-Public Use
  Company Number: DE-BIOGENIDEC-2012BI021688

PATIENT
  Age: 34 Year
  Sex: Female

DRUGS (4)
  1. VALDOXAN [Concomitant]
     Indication: PRODUCT USED FOR UNKNOWN INDICATION
  2. FAMPYRA [Concomitant]
     Indication: MULTIPLE SCLEROSIS
  3. GABAPENTIN [Concomitant]
     Indication: PRODUCT USED FOR UNKNOWN INDICATION
  4. TYSABRI [Suspect]
     Indication: MULTIPLE SCLEROSIS
     Route: 042
     Dates: start: 20071001

REACTIONS (1)
  - BREAST CANCER [None]
